FAERS Safety Report 14299212 (Version 2)
Quarter: 2018Q1

REPORT INFORMATION
  Report Type: Spontaneous
  Country: US (occurrence: US)
  Receive Date: 20171219
  Receipt Date: 20180328
  Transmission Date: 20180509
  Serious: No
  Sender: FDA-Public Use
  Company Number: US-ASTRAZENECA-2017SF21737

PATIENT
  Age: 14933 Day
  Sex: Male

DRUGS (1)
  1. LYNPARZA [Suspect]
     Active Substance: OLAPARIB
     Indication: PANCREATIC CARCINOMA STAGE IV
     Route: 048
     Dates: start: 201708

REACTIONS (4)
  - Hyperhidrosis [Unknown]
  - Off label use [Unknown]
  - Product use in unapproved indication [Unknown]
  - Drug dose omission [Unknown]

NARRATIVE: CASE EVENT DATE: 20180224
